FAERS Safety Report 24837226 (Version 2)
Quarter: 2025Q1

REPORT INFORMATION
  Report Type: Spontaneous
  Country: PL (occurrence: PL)
  Receive Date: 20250113
  Receipt Date: 20250121
  Transmission Date: 20250408
  Serious: Yes (Other)
  Sender: MYLAN
  Company Number: PL-PFM-2024-06511

PATIENT
  Sex: Female

DRUGS (3)
  1. ISOTRETINOIN [Suspect]
     Active Substance: ISOTRETINOIN
     Indication: Hidradenitis
     Route: 048
  2. ISOTRETINOIN [Suspect]
     Active Substance: ISOTRETINOIN
     Indication: Fungal infection
  3. ISOTRETINOIN [Suspect]
     Active Substance: ISOTRETINOIN
     Indication: Skin infection

REACTIONS (6)
  - Candida infection [Unknown]
  - Dermatitis [Unknown]
  - Cheilitis [Unknown]
  - Medication error [Unknown]
  - Product use in unapproved indication [Unknown]
  - Off label use [Unknown]
